FAERS Safety Report 5123039-X (Version None)
Quarter: 2006Q4

REPORT INFORMATION
  Report Type: 
  Country: None (occurrence: None)
  Receive Date: 20061009
  Receipt Date: 20060925
  Transmission Date: 20070319
  Serious: Yes (Other)
  Sender: FDA-Public Use
  Company Number: PHBS2006IN14908

PATIENT
  Age: 21 Year
  Sex: Male

DRUGS (3)
  1. OXCARBAZEPINE [Suspect]
     Dosage: 900 MG/DAY
  2. RISPERIDONE [Suspect]
     Indication: PSYCHOTIC DISORDER
     Dosage: 2 MG/DAY
     Route: 048
  3. RISPERIDONE [Suspect]
     Dosage: 4 MG/DAY
     Route: 048

REACTIONS (3)
  - ACUTE PSYCHOSIS [None]
  - ERYTHEMA MULTIFORME [None]
  - RASH PAPULAR [None]
